FAERS Safety Report 16423908 (Version 1)
Quarter: 2019Q2

REPORT INFORMATION
  Report Type: Spontaneous
  Country: US (occurrence: US)
  Receive Date: 20190613
  Receipt Date: 20190613
  Transmission Date: 20190711
  Serious: No
  Sender: FDA-Public Use
  Company Number: US-AMGEN-USASP2019089288

PATIENT
  Age: 63 Year
  Sex: Female

DRUGS (8)
  1. PROTONIX [OMEPRAZOLE] [Concomitant]
     Active Substance: OMEPRAZOLE
  2. IPRATROPIUM [Concomitant]
     Active Substance: IPRATROPIUM
     Dosage: UNK
  3. PROLIA [Suspect]
     Active Substance: DENOSUMAB
     Indication: OSTEOPOROSIS POSTMENOPAUSAL
     Dosage: 60 MILLIGRAM, Q6MO
     Route: 065
     Dates: start: 20190412, end: 20190412
  4. BETAINE [Concomitant]
     Active Substance: BETAINE
     Dosage: UNK
  5. LINZESS [Concomitant]
     Active Substance: LINACLOTIDE
     Dosage: UNK
  6. BUSPAR [Concomitant]
     Active Substance: BUSPIRONE HYDROCHLORIDE
     Dosage: UNK
  7. PROLIA [Suspect]
     Active Substance: DENOSUMAB
     Indication: OSTEOPENIA
  8. NORVASC [Concomitant]
     Active Substance: AMLODIPINE BESYLATE
     Dosage: 2.5 MILLIGRAM

REACTIONS (9)
  - Flank pain [Unknown]
  - Fatigue [Unknown]
  - Medial tibial stress syndrome [Recovered/Resolved]
  - Dyspepsia [Recovered/Resolved]
  - Vertigo [Recovering/Resolving]
  - Gastrooesophageal reflux disease [Unknown]
  - Myalgia [Unknown]
  - Asthenia [Unknown]
  - Depression [Unknown]

NARRATIVE: CASE EVENT DATE: 2019
